FAERS Safety Report 12196682 (Version 4)
Quarter: 2016Q3

REPORT INFORMATION
  Report Type: Spontaneous
  Country: JP (occurrence: JP)
  Receive Date: 20160321
  Receipt Date: 20160930
  Transmission Date: 20161109
  Serious: Yes (Other)
  Sender: FDA-Public Use
  Company Number: JP-INCYTE CORPORATION-2016IN001590

PATIENT

DRUGS (4)
  1. JAKAFI [Suspect]
     Active Substance: RUXOLITINIB
     Dosage: 10 MG, QD
     Route: 048
     Dates: start: 20151013
  2. JAKAFI [Suspect]
     Active Substance: RUXOLITINIB
     Indication: PRIMARY MYELOFIBROSIS
     Dosage: 40 MG, QD
     Route: 048
     Dates: start: 20150402, end: 20150908
  3. CONCENTRATED RED CELLS [Concomitant]
     Active Substance: HUMAN RED BLOOD CELL
     Dosage: 2 IU, UNK
     Route: 041
  4. CONCENTRATED RED CELLS [Concomitant]
     Active Substance: HUMAN RED BLOOD CELL
     Indication: PRODUCT USED FOR UNKNOWN INDICATION
     Dosage: 5 IU, UNK
     Route: 041

REACTIONS (12)
  - Malaise [Recovered/Resolved]
  - Upper respiratory tract inflammation [Unknown]
  - Abdominal distension [Recovered/Resolved]
  - Nasopharyngitis [Unknown]
  - Splenomegaly [Unknown]
  - Lymphopenia [Unknown]
  - Sinusitis [Unknown]
  - Anaemia [Recovering/Resolving]
  - Hypoaesthesia [Unknown]
  - Early satiety [Recovered/Resolved]
  - Concomitant disease aggravated [Recovered/Resolved]
  - Drug withdrawal syndrome [Unknown]

NARRATIVE: CASE EVENT DATE: 20150908
